FAERS Safety Report 10079028 (Version 4)
Quarter: 2014Q2

REPORT INFORMATION
  Report Type: Spontaneous
  Country: BR (occurrence: BR)
  Receive Date: 20140415
  Receipt Date: 20140529
  Transmission Date: 20141212
  Serious: No
  Sender: FDA-Public Use
  Company Number: BR-SA-2014SA042301

PATIENT
  Age: 66 Year
  Sex: Female
  Weight: 92 kg

DRUGS (9)
  1. LANTUS [Suspect]
     Indication: TYPE 2 DIABETES MELLITUS
     Dosage: DOSE:50 IU IN THE MORNING AND 10 IU AT NIGHT
     Route: 058
     Dates: start: 2009
  2. DEVICE NOS [Concomitant]
     Indication: DEVICE THERAPY
  3. ALL OTHER THERAPEUTIC PRODUCTS [Concomitant]
     Indication: DIVERTICULITIS
     Route: 065
     Dates: start: 2010
  4. BUSCOPAN [Concomitant]
     Indication: PAIN
     Route: 065
     Dates: start: 2013
  5. AAS [Concomitant]
     Indication: ANTICOAGULANT THERAPY
     Route: 065
     Dates: start: 2013
  6. SIMVASTATIN [Concomitant]
     Indication: BLOOD CHOLESTEROL
     Route: 065
     Dates: start: 2013
  7. NITRAZEPAM [Concomitant]
     Indication: NERVOUS SYSTEM DISORDER
     Route: 065
     Dates: start: 1974
  8. DIAZEPAM [Concomitant]
     Indication: NERVOUS SYSTEM DISORDER
     Route: 065
     Dates: start: 1974
  9. OMEPRAZOLE [Concomitant]
     Indication: PROPHYLAXIS AGAINST GASTROINTESTINAL ULCER
     Route: 065
     Dates: start: 2012

REACTIONS (4)
  - Abdominal pain [Recovered/Resolved]
  - Malaise [Recovered/Resolved]
  - Insomnia [Recovered/Resolved]
  - Off label use [Unknown]
